FAERS Safety Report 20027175 (Version 1)
Quarter: 2021Q4

REPORT INFORMATION
  Report Type: Spontaneous
  Country: US (occurrence: US)
  Receive Date: 20211103
  Receipt Date: 20211103
  Transmission Date: 20220304
  Serious: No
  Sender: FDA-Public Use
  Company Number: US-SA-SAC20211027001002

PATIENT
  Age: 40 Year
  Sex: Female

DRUGS (6)
  1. DUPIXENT [Suspect]
     Active Substance: DUPILUMAB
     Indication: Asthma
     Dosage: 300 MG, QOW
     Route: 058
     Dates: start: 20200605
  2. BUDESONIDE [Concomitant]
     Active Substance: BUDESONIDE
  3. HUMIRA [Concomitant]
     Active Substance: ADALIMUMAB
  4. ZELASTINE [Concomitant]
  5. SPIRONOLACTONE [Concomitant]
     Active Substance: SPIRONOLACTONE
  6. ZAFIRLUKAST [Concomitant]
     Active Substance: ZAFIRLUKAST

REACTIONS (3)
  - Asthma [Unknown]
  - Chest discomfort [Unknown]
  - Dyspnoea [Unknown]
